FAERS Safety Report 6114527-8 (Version None)
Quarter: 2009Q1

REPORT INFORMATION
  Report Type: 
  Country: None (occurrence: None)
  Receive Date: 20090313
  Receipt Date: 20090303
  Transmission Date: 20090719
  Serious: Yes (Death)
  Sender: FDA-Public Use
  Company Number: US-ROCHE-618146

PATIENT
  Age: 53 Year
  Sex: Male

DRUGS (2)
  1. XELODA [Suspect]
     Indication: COLON CANCER
     Dosage: DOSE: 150 AND 500, FOUR TIMES A DAY
     Route: 065
     Dates: start: 20090220
  2. ZOFRAN [Concomitant]

REACTIONS (1)
  - DEATH [None]
